FAERS Safety Report 15020734 (Version 1)
Quarter: 2018Q2

REPORT INFORMATION
  Report Type: Spontaneous
  Country: PT (occurrence: FR)
  Receive Date: 20180618
  Receipt Date: 20180618
  Transmission Date: 20180711
  Serious: Yes (Congenital Anomaly)
  Sender: FDA-Public Use
  Company Number: PT-SUNOVION-2018SUN002441

PATIENT

DRUGS (4)
  1. NOVORAPID [Concomitant]
     Active Substance: INSULIN ASPART
  2. ACIDE FOLIQUE [Concomitant]
     Active Substance: FOLIC ACID
  3. LAMICTAL [Suspect]
     Active Substance: LAMOTRIGINE
     Indication: EPILEPSY
     Dosage: 300 MG, 1X / DAY
     Route: 064
     Dates: start: 20171128, end: 20180224
  4. ZEBINIX [Suspect]
     Active Substance: ESLICARBAZEPINE ACETATE
     Indication: EPILEPSY
     Dosage: 800 MG, 1X / DAY
     Route: 064
     Dates: start: 20170609, end: 20171128

REACTIONS (2)
  - Foetal exposure during pregnancy [Unknown]
  - Polydactyly [Not Recovered/Not Resolved]

NARRATIVE: CASE EVENT DATE: 20180224
